FAERS Safety Report 12137195 (Version 1)
Quarter: 2016Q1

REPORT INFORMATION
  Report Type: Spontaneous
  Country: US (occurrence: US)
  Receive Date: 20160302
  Receipt Date: 20160302
  Transmission Date: 20160526
  Serious: No
  Sender: FDA-Public Use
  Company Number: US-INSYS THERAPEUTICS, INC-INS201509-000389

PATIENT
  Age: 64 Year
  Sex: Female
  Weight: 113.4 kg

DRUGS (9)
  1. SUBSYS [Suspect]
     Active Substance: FENTANYL
     Indication: MUSCULOSKELETAL PAIN
  2. DILTIAZEM [Concomitant]
     Active Substance: DILTIAZEM
     Indication: CARDIAC FAILURE CONGESTIVE
  3. SUBSYS [Suspect]
     Active Substance: FENTANYL
     Indication: ARTHRALGIA
     Dates: start: 201411
  4. OXYCODONE [Concomitant]
     Active Substance: OXYCODONE
     Indication: PAIN
  5. SUBSYS [Suspect]
     Active Substance: FENTANYL
     Indication: BACK PAIN
  6. CLONIDINE HCL [Concomitant]
     Active Substance: CLONIDINE HYDROCHLORIDE
     Indication: CARDIAC FAILURE CONGESTIVE
  7. TYLENOL [Concomitant]
     Active Substance: ACETAMINOPHEN
     Indication: PAIN
  8. OXYCONTIN [Concomitant]
     Active Substance: OXYCODONE HYDROCHLORIDE
     Indication: PAIN
  9. HYDRALAZINE [Concomitant]
     Active Substance: HYDRALAZINE HYDROCHLORIDE
     Indication: HYPERTENSION

REACTIONS (2)
  - Off label use [Unknown]
  - Nerve injury [Not Recovered/Not Resolved]

NARRATIVE: CASE EVENT DATE: 201411
